FAERS Safety Report 20938760 (Version 1)
Quarter: 2022Q2

REPORT INFORMATION
  Report Type: Spontaneous
  Country: US (occurrence: None)
  Receive Date: 20220608
  Receipt Date: 20220608
  Transmission Date: 20220721
  Serious: Yes (Hospitalization)
  Sender: FDA-Public Use
  Company Number: None

PATIENT
  Age: 66 Year
  Sex: Female
  Weight: 50.9 kg

DRUGS (1)
  1. OPDIVO [Suspect]
     Active Substance: NIVOLUMAB
     Indication: Oesophageal adenocarcinoma
     Dates: start: 20211102, end: 20220419

REACTIONS (9)
  - Abdominal pain [None]
  - Urinary tract infection [None]
  - Weight decreased [None]
  - Hypotension [None]
  - Vomiting [None]
  - Dysphagia [None]
  - Dehydration [None]
  - Computerised tomogram abnormal [None]
  - Acute kidney injury [None]

NARRATIVE: CASE EVENT DATE: 20220524
